FAERS Safety Report 19171991 (Version 1)
Quarter: 2021Q2

REPORT INFORMATION
  Report Type: Spontaneous
  Country: US (occurrence: US)
  Receive Date: 20210423
  Receipt Date: 20210423
  Transmission Date: 20210717
  Serious: Yes (Other)
  Sender: FDA-Public Use
  Company Number: US-ROCHE-2814262

PATIENT
  Sex: Male

DRUGS (2)
  1. GABAPENTIN. [Concomitant]
     Active Substance: GABAPENTIN
     Indication: MOOD ALTERED
  2. CLONAZEPAM. [Suspect]
     Active Substance: CLONAZEPAM
     Indication: MOOD ALTERED
     Route: 065

REACTIONS (1)
  - Seizure [Unknown]
